FAERS Safety Report 8318570-X (Version None)
Quarter: 2012Q2

REPORT INFORMATION
  Report Type: 
  Country: None (occurrence: None)
  Receive Date: 20120425
  Receipt Date: 20120316
  Transmission Date: 20120825
  Serious: Yes (Hospitalization)
  Sender: FDA-Public Use
  Company Number: IMP_05784_2012

PATIENT
  Age: 52 Year
  Sex: Female

DRUGS (1)
  1. FENOFIBRATE [Suspect]
     Indication: DYSLIPIDAEMIA
     Dosage: 200 MG, DAILY

REACTIONS (5)
  - ANAEMIA [None]
  - METABOLIC ALKALOSIS [None]
  - RHABDOMYOLYSIS [None]
  - HYPERKALAEMIA [None]
  - ABASIA [None]
